FAERS Safety Report 24051377 (Version 1)
Quarter: 2024Q3

REPORT INFORMATION
  Report Type: Spontaneous
  Country: CN (occurrence: CN)
  Receive Date: 20240704
  Receipt Date: 20240704
  Transmission Date: 20241017
  Serious: Yes (Hospitalization)
  Sender: NOVARTIS
  Company Number: CN-002147023-NVSC2024CN138546

PATIENT
  Age: 73 Year
  Sex: Male

DRUGS (2)
  1. SACUBITRIL\VALSARTAN [Suspect]
     Active Substance: SACUBITRIL\VALSARTAN
     Indication: Cardiac failure
     Dosage: 200 MG, QD
     Route: 048
     Dates: start: 20240601, end: 20240701
  2. SACUBITRIL\VALSARTAN [Suspect]
     Active Substance: SACUBITRIL\VALSARTAN
     Indication: Hypertension

REACTIONS (10)
  - Anaemia [Recovering/Resolving]
  - Chest discomfort [Unknown]
  - Palpitations [Unknown]
  - Discomfort [Unknown]
  - Tachypnoea [Unknown]
  - Dyspnoea [Unknown]
  - Benign prostatic hyperplasia [Unknown]
  - Angina pectoris [Unknown]
  - Cardiac failure [Unknown]
  - Hypertension [Unknown]

NARRATIVE: CASE EVENT DATE: 20240630
